FAERS Safety Report 6442271-6 (Version None)
Quarter: 2009Q4

REPORT INFORMATION
  Report Type: 
  Country: None (occurrence: None)
  Receive Date: 20091112
  Receipt Date: 20091031
  Transmission Date: 20100525
  Serious: Yes (Life-Threatening)
  Sender: FDA-Public Use
  Company Number: TOR 2009-0075

PATIENT
  Age: 65 Year
  Sex: Female

DRUGS (6)
  1. FARESTON [Suspect]
     Dosage: 120 MG, ORAL
     Route: 048
     Dates: start: 20080717
  2. ENDOXAN [Suspect]
     Dosage: 50 MG, ORAL
     Route: 048
     Dates: start: 20050728, end: 20060518
  3. ENDOXAN [Suspect]
     Dosage: 50 MG, ORAL
     Route: 048
     Dates: start: 20080828, end: 20090514
  4. ARIMIDEX [Concomitant]
  5. SELBEX [Concomitant]
  6. ZOMETA [Concomitant]

REACTIONS (9)
  - CYSTITIS HAEMORRHAGIC [None]
  - HAEMOGLOBIN DECREASED [None]
  - HYDRONEPHROSIS [None]
  - LYMPHOCYTE PERCENTAGE DECREASED [None]
  - NEUTROPHIL PERCENTAGE INCREASED [None]
  - PLATELET COUNT INCREASED [None]
  - PROTHROMBIN TIME SHORTENED [None]
  - RED BLOOD CELL COUNT DECREASED [None]
  - WHITE BLOOD CELL COUNT INCREASED [None]
